FAERS Safety Report 10267347 (Version 2)
Quarter: 2014Q3

REPORT INFORMATION
  Report Type: Spontaneous
  Country: US (occurrence: None)
  Receive Date: 20140625
  Receipt Date: 20140821
  Transmission Date: 20150326
  Serious: Yes (Other)
  Sender: FDA-Public Use
  Company Number: USW201406-000120

PATIENT
  Sex: Male

DRUGS (1)
  1. APOKYN [Suspect]
     Active Substance: APOMORPHINE HYDROCHLORIDE
     Indication: PARKINSON^S DISEASE
     Dosage: INJECTION, 0.1ML 5 TIMES DAILY
     Route: 058
     Dates: start: 20140316

REACTIONS (4)
  - Insomnia [None]
  - Nightmare [None]
  - No adverse event [None]
  - Convulsion [None]
